FAERS Safety Report 6494240-8 (Version None)
Quarter: 2009Q4

REPORT INFORMATION
  Report Type: 
  Country: None (occurrence: None)
  Receive Date: 20091214
  Receipt Date: 20090323
  Transmission Date: 20100525
  Serious: No
  Sender: FDA-Public Use
  Company Number: US-BRISTOL-MYERS SQUIBB COMPANY-14485445

PATIENT
  Age: 27 Year
  Sex: Male

DRUGS (4)
  1. ABILIFY [Suspect]
     Indication: DEPRESSION
     Route: 048
     Dates: start: 20090104, end: 20090101
  2. LOSARTAN [Suspect]
     Dosage: LATER 60MG FROM 06-JAN-2009.
     Dates: start: 20081222
  3. CYMBALTA [Suspect]
     Dosage: STARTED WITH 120MG, THEN DECREASED TO 90MG
  4. ALPRAZOLAM [Suspect]
     Dosage: EVERY NIGHT
     Dates: start: 20081222

REACTIONS (2)
  - CHROMATURIA [None]
  - MUSCLE SPASMS [None]
